FAERS Safety Report 26136414 (Version 1)
Quarter: 2025Q4

REPORT INFORMATION
  Report Type: Spontaneous
  Country: US (occurrence: US)
  Receive Date: 20251209
  Receipt Date: 20251209
  Transmission Date: 20260117
  Serious: No
  Sender: STRIDES
  Company Number: US-STRIDES ARCOLAB LIMITED-2025SP012729

PATIENT
  Age: 55 Year
  Sex: Male

DRUGS (8)
  1. TRAMADOL [Suspect]
     Active Substance: TRAMADOL
     Indication: Complex regional pain syndrome
     Dosage: 50 MILLIGRAM, EVERY 6 HRS
     Route: 065
  2. TRAMADOL [Suspect]
     Active Substance: TRAMADOL
     Indication: Mononeuropathy
  3. LYRICA [Suspect]
     Active Substance: PREGABALIN
     Indication: Complex regional pain syndrome
     Dosage: 150 MILLIGRAM, BID
     Route: 065
  4. LYRICA [Suspect]
     Active Substance: PREGABALIN
     Indication: Mononeuropathy
  5. LIDOCAINE [Suspect]
     Active Substance: LIDOCAINE
     Indication: Complex regional pain syndrome
     Dosage: PATCH
     Route: 062
  6. LIDOCAINE [Suspect]
     Active Substance: LIDOCAINE
     Indication: Mononeuropathy
  7. TYLENOL [Suspect]
     Active Substance: ACETAMINOPHEN
     Indication: Complex regional pain syndrome
     Dosage: UNK
     Route: 065
  8. TYLENOL [Suspect]
     Active Substance: ACETAMINOPHEN
     Indication: Mononeuropathy

REACTIONS (1)
  - Drug ineffective [Unknown]
